FAERS Safety Report 17054011 (Version 2)
Quarter: 2019Q4

REPORT INFORMATION
  Report Type: Spontaneous
  Country: FR (occurrence: FR)
  Receive Date: 20191120
  Receipt Date: 20191126
  Transmission Date: 20200122
  Serious: Yes (Hospitalization, Other)
  Sender: FDA-Public Use
  Company Number: FR-PFIZER INC-2019495511

PATIENT
  Age: 40 Year
  Sex: Female

DRUGS (15)
  1. VINCRISTINE SULFATE. [Suspect]
     Active Substance: VINCRISTINE SULFATE
     Dosage: UP TO MAXIMUM 2MG, D1. REPEATED EVERY 7-14 DAYS
  2. ERYTHROPOIETIN [Concomitant]
     Active Substance: ERYTHROPOIETIN
     Dosage: UNK
     Route: 058
  3. DARBOSIS [Concomitant]
     Dosage: 500 UG, 2X/WEEK,RECOMBINANT ERYTHROPOIETIN (EPO)
     Route: 058
  4. DOXORUBICIN HCL [Suspect]
     Active Substance: DOXORUBICIN HYDROCHLORIDE
     Indication: B PRECURSOR TYPE ACUTE LEUKAEMIA
     Dosage: 50 MG/M2, CYCLIC (D1, REPEATED EVERY 7-14 DAYS)
  5. HEPARIN [Concomitant]
     Active Substance: HEPARIN SODIUM
     Dosage: UNK,AS NEEDED
     Route: 042
  6. CYTARABINE. [Concomitant]
     Active Substance: CYTARABINE
     Dosage: UNK,HIGH-DOSE
  7. VITAMIN B9 [Concomitant]
     Dosage: 50 MG, UNK (EVERY TWO DAYS)
     Route: 042
  8. VINCRISTINE SULFATE. [Suspect]
     Active Substance: VINCRISTINE SULFATE
     Indication: B PRECURSOR TYPE ACUTE LEUKAEMIA
     Dosage: 1.4 MG/M2, CYCLIC(D1, REPEATED EVERY 7-14 DAYS)
  9. CYTARABINE. [Concomitant]
     Active Substance: CYTARABINE
     Dosage: UNK, (LOW DOSE)
  10. PREDNISONE. [Suspect]
     Active Substance: PREDNISONE
     Indication: B PRECURSOR TYPE ACUTE LEUKAEMIA
     Dosage: 40 MG/M2, CYCLIC(D1, REPEATED EVERY 7-14 DAYS)
  11. L ASPARAGINASE [Concomitant]
     Active Substance: ASPARAGINASE
     Dosage: UNK(6000 UI/M^2 AT DAYS 8, 10, 12, 16, 18, 20, 22 AND 24)INDUCTION
  12. ANTITHROMBIN III [Concomitant]
     Active Substance: ANTITHROMBIN III HUMAN
     Dosage: UNK,AS NEEDED
     Route: 042
  13. ETOPOSIDE. [Concomitant]
     Active Substance: ETOPOSIDE
     Dosage: UNK,LOW-DOSE
  14. 6-MERCAPTOPURINE MONOHYDRATE [Concomitant]
     Active Substance: MERCAPTOPURINE
     Dosage: UNK
  15. CYCLOPHOSPHAMIDE. [Suspect]
     Active Substance: CYCLOPHOSPHAMIDE
     Indication: B PRECURSOR TYPE ACUTE LEUKAEMIA
     Dosage: 750 MG/M2, CYCLIC (D1, REPEATED EVERY 7-14 DAYS)

REACTIONS (3)
  - Neutropenia [Unknown]
  - Anaemia [Unknown]
  - Thrombocytopenia [Unknown]
